FAERS Safety Report 24704240 (Version 1)
Quarter: 2024Q4

REPORT INFORMATION
  Report Type: Spontaneous
  Country: RO (occurrence: RO)
  Receive Date: 20241206
  Receipt Date: 20241206
  Transmission Date: 20250114
  Serious: Yes (Other)
  Sender: JOHNSON AND JOHNSON
  Company Number: RO-PFM-2024-06299

PATIENT
  Age: 40 Year
  Sex: Male

DRUGS (8)
  1. RISPERDAL [Suspect]
     Active Substance: RISPERIDONE
     Indication: Antipsychotic therapy
     Dosage: 1.5 MG/DAY
     Route: 065
  2. RISPERDAL [Suspect]
     Active Substance: RISPERIDONE
     Dosage: 0.75 MG/DAY
     Route: 065
  3. FERROUS SULFATE [Suspect]
     Active Substance: FERROUS SULFATE
     Indication: Encephalitis autoimmune
     Dosage: 4 DF/DAY
     Route: 065
  4. VALPROIC ACID [Suspect]
     Active Substance: VALPROIC ACID
     Indication: Affective disorder
     Dosage: 2.5 G/DAY
     Route: 065
  5. DIETARY SUPPLEMENT [Suspect]
     Active Substance: DIETARY SUPPLEMENT
     Indication: Encephalitis autoimmune
     Dosage: 4 DF/DAY
     Route: 065
  6. ENOXAPARIN SODIUM [Suspect]
     Active Substance: ENOXAPARIN SODIUM
     Indication: Encephalitis autoimmune
     Dosage: 0.6 UI, BID (2/DAY)
  7. RINGERS SOLUTION [Suspect]
     Active Substance: CALCIUM CHLORIDE\POTASSIUM CHLORIDE\SODIUM CHLORIDE
     Indication: Encephalitis autoimmune
     Dosage: 500 ML, QID (4/DAY)
     Route: 065
  8. SPIRONOLACTONE [Suspect]
     Active Substance: SPIRONOLACTONE
     Indication: Encephalitis autoimmune
     Dosage: 25 MG/DAY
     Route: 065

REACTIONS (5)
  - Clostridium difficile infection [Unknown]
  - Blood potassium decreased [Recovering/Resolving]
  - Haemoglobin decreased [Unknown]
  - Incorrect dose administered [Unknown]
  - Off label use [Unknown]
